FAERS Safety Report 19461369 (Version 1)
Quarter: 2021Q2

REPORT INFORMATION
  Report Type: Spontaneous
  Country: US (occurrence: US)
  Receive Date: 20210625
  Receipt Date: 20210625
  Transmission Date: 20210717
  Serious: Yes (Other)
  Sender: FDA-Public Use
  Company Number: US-TERSERA THERAPEUTICS LLC-2021TRS002904

PATIENT

DRUGS (1)
  1. PRIALT [Suspect]
     Active Substance: ZICONOTIDE ACETATE
     Indication: PRODUCT USED FOR UNKNOWN INDICATION
     Dosage: 2 MCG, QD (20 ML VIAL)
     Route: 037

REACTIONS (2)
  - Condition aggravated [Not Recovered/Not Resolved]
  - Erectile dysfunction [Not Recovered/Not Resolved]
